FAERS Safety Report 16541946 (Version 2)
Quarter: 2019Q3

REPORT INFORMATION
  Report Type: Spontaneous
  Country: CN (occurrence: CN)
  Receive Date: 20190708
  Receipt Date: 20190716
  Transmission Date: 20191004
  Serious: Yes (Hospitalization, Other)
  Sender: FDA-Public Use
  Company Number: CN-JNJFOC-20190604278

PATIENT
  Age: 10 Decade
  Sex: Female

DRUGS (2)
  1. XARELTO [Suspect]
     Active Substance: RIVAROXABAN
     Dosage: 10 MG, QD
     Route: 048
     Dates: start: 201905
  2. XARELTO [Suspect]
     Active Substance: RIVAROXABAN
     Indication: ATRIAL FIBRILLATION
     Route: 048
     Dates: start: 201905, end: 201905

REACTIONS (5)
  - Gastric disorder [Recovered/Resolved]
  - Cerebral infarction [Unknown]
  - Epistaxis [Recovering/Resolving]
  - Off label use [Unknown]
  - Coronary artery disease [Unknown]

NARRATIVE: CASE EVENT DATE: 201905
